FAERS Safety Report 4962021-X (Version None)
Quarter: 2006Q2

REPORT INFORMATION
  Report Type: 
  Country: None (occurrence: None)
  Receive Date: 20060404
  Receipt Date: 20060322
  Transmission Date: 20061013
  Serious: Yes (Other)
  Sender: FDA-Public Use
  Company Number: US-ROCHE-441665

PATIENT
  Age: 56 Year
  Sex: Male

DRUGS (4)
  1. PEGASYS [Suspect]
     Dosage: ROUTE WAS REPORTED AS INJECTABLE. RECEIVED TWO INJECTION IN TOTAL.
     Route: 050
     Dates: start: 20060310, end: 20060316
  2. COPEGUS [Suspect]
     Route: 048
     Dates: start: 20060310, end: 20060316
  3. PHENYTOIN [Concomitant]
     Route: 048
  4. CARBAMAZEPINE [Concomitant]
     Route: 048

REACTIONS (2)
  - BLOOD PRESSURE INCREASED [None]
  - CONVULSION [None]
